FAERS Safety Report 14422394 (Version 1)
Quarter: 2018Q1

REPORT INFORMATION
  Report Type: Spontaneous
  Country: PL (occurrence: PL)
  Receive Date: 20180123
  Receipt Date: 20180123
  Transmission Date: 20180509
  Serious: Yes (Other)
  Sender: FDA-Public Use
  Company Number: PL-WEST-WARD PHARMACEUTICALS CORP.-PL-H14001-18-00495

PATIENT
  Age: 35 Year
  Sex: Female

DRUGS (4)
  1. AMOXICILLIN CLAVULANIC ACID [Suspect]
     Active Substance: AMOXICILLIN\CLAVULANIC ACID
     Indication: ANTIBIOTIC PROPHYLAXIS
     Dosage: 1000 MG, TID
     Route: 065
  2. AZITHROMYCIN ANHYDROUS. [Suspect]
     Active Substance: AZITHROMYCIN ANHYDROUS
     Indication: ANTIBIOTIC PROPHYLAXIS
     Dosage: 500 MG, QD
     Route: 065
  3. CEFTRIAXONE. [Suspect]
     Active Substance: CEFTRIAXONE
     Indication: ANTIBIOTIC PROPHYLAXIS
     Dosage: 1000 MG, QD
     Route: 065
  4. CEFADROXIL MONOHYDRATE [Suspect]
     Active Substance: CEFADROXIL
     Indication: ANTIBIOTIC PROPHYLAXIS
     Dosage: 500 MG, BID
     Route: 065

REACTIONS (3)
  - Pathogen resistance [Unknown]
  - Drug ineffective [Unknown]
  - Superinfection bacterial [Recovered/Resolved]
